FAERS Safety Report 20517917 (Version 1)
Quarter: 2022Q1

REPORT INFORMATION
  Report Type: Spontaneous
  Country: NL (occurrence: NL)
  Receive Date: 20220225
  Receipt Date: 20220225
  Transmission Date: 20220424
  Serious: Yes (Death)
  Sender: FDA-Public Use
  Company Number: NL-BIOGEN-2022BI01100126

PATIENT
  Age: 63 Year
  Sex: Female

DRUGS (1)
  1. DALFAMPRIDINE [Suspect]
     Active Substance: DALFAMPRIDINE
     Indication: Gait disturbance
     Route: 048
     Dates: start: 20191222, end: 20220130

REACTIONS (2)
  - Skull fractured base [Fatal]
  - Fall [Fatal]

NARRATIVE: CASE EVENT DATE: 20220130
